FAERS Safety Report 4553475-1 (Version None)
Quarter: 2005Q1

REPORT INFORMATION
  Report Type: 
  Country: None (occurrence: None)
  Receive Date: 20050112
  Receipt Date: 20050103
  Transmission Date: 20050727
  Serious: Yes (Disabling, Other)
  Sender: FDA-Public Use
  Company Number: 2004-12-0141

PATIENT
  Sex: Male

DRUGS (2)
  1. GENTAMICIN SULFATE [Suspect]
     Indication: PROSTATE INFECTION
     Dosage: 160 MG QD INTRAMUSCULAR
     Route: 030
     Dates: start: 20030701, end: 20030708
  2. AUGMENTIN '125' [Concomitant]

REACTIONS (9)
  - AREFLEXIA [None]
  - BALANCE DISORDER [None]
  - CEREBELLAR SYNDROME [None]
  - LABORATORY TEST ABNORMAL [None]
  - LOSS OF CONSCIOUSNESS [None]
  - NAUSEA [None]
  - NECK PAIN [None]
  - REFLEXES ABNORMAL [None]
  - VERTIGO [None]
